FAERS Safety Report 23916784 (Version 1)
Quarter: 2024Q2

REPORT INFORMATION
  Report Type: Spontaneous
  Country: US (occurrence: US)
  Receive Date: 20240529
  Receipt Date: 20240529
  Transmission Date: 20240715
  Serious: No
  Sender: FDA-Public Use
  Company Number: US-BAYER-2024A078475

PATIENT
  Age: 77 Year

DRUGS (2)
  1. MIRALAX [Suspect]
     Active Substance: POLYETHYLENE GLYCOL 3350
     Indication: Constipation
     Dosage: 17 G
     Route: 048
     Dates: start: 20240526
  2. MIRALAX [Suspect]
     Active Substance: POLYETHYLENE GLYCOL 3350
     Indication: Gastrointestinal disorder

REACTIONS (3)
  - Nausea [Unknown]
  - Abdominal pain [Unknown]
  - Abdominal discomfort [Unknown]
